FAERS Safety Report 8988742 (Version 1)
Quarter: 2012Q4

REPORT INFORMATION
  Report Type: Spontaneous
  Country: US (occurrence: None)
  Receive Date: 20121224
  Receipt Date: 20121224
  Transmission Date: 20130627
  Serious: No
  Sender: FDA-Public Use
  Company Number: None

PATIENT
  Age: 43 Year
  Sex: Female
  Weight: 60.33 kg

DRUGS (1)
  1. ALENDRONATE SODIUM 70MG GENERIC [Suspect]
     Indication: OSTEOPOROSIS
     Route: 048
     Dates: start: 20121213, end: 20121213

REACTIONS (3)
  - Swelling face [None]
  - Oedema peripheral [None]
  - Musculoskeletal pain [None]
